FAERS Safety Report 5822144-X (Version None)
Quarter: 2008Q3

REPORT INFORMATION
  Report Type: 
  Country: None (occurrence: None)
  Receive Date: 20080725
  Receipt Date: 20080716
  Transmission Date: 20090109
  Serious: Yes (Disabling, Other)
  Sender: FDA-Public Use
  Company Number: PHHY2008BR14431

PATIENT
  Age: 41 Year
  Sex: Female
  Weight: 78.5 kg

DRUGS (8)
  1. PAMELOR [Suspect]
     Indication: DEPRESSION
     Dosage: 75 MG, BID
     Dates: start: 20080401
  2. PAMELOR [Suspect]
     Dosage: UNK
  3. TOFRANIL [Suspect]
     Indication: DEPRESSION
     Dosage: UNK
     Dates: start: 20030101, end: 20080401
  4. TRICYCLIC ANTIDEPRESSANTS [Suspect]
  5. PROPRANOLOL [Suspect]
     Indication: MITRAL VALVE PROLAPSE
     Dosage: 40 MG, (2 TABS MORNING+1 TAB LUNCH+1 TAB NIGHT)
     Dates: start: 20030101
  6. LITHIUM CARBONATE [Concomitant]
     Dosage: 600 MG/DAY
  7. CLONAZEPAM [Concomitant]
     Dosage: 2 MG, UNK
  8. HYDROCHLOROTHIAZIDE [Concomitant]
     Dosage: 25 MG, UNK

REACTIONS (6)
  - DEPRESSION [None]
  - IMPAIRED WORK ABILITY [None]
  - MEMORY IMPAIRMENT [None]
  - SWELLING [None]
  - TACHYCARDIA [None]
  - WEIGHT INCREASED [None]
